FAERS Safety Report 9907602 (Version 2)
Quarter: 2014Q1

REPORT INFORMATION
  Report Type: Report from Study
  Country: BE (occurrence: BE)
  Receive Date: 20140219
  Receipt Date: 20140219
  Transmission Date: 20141002
  Serious: Yes (Hospitalization)
  Sender: FDA-Public Use
  Company Number: BE-ROCHE-1318328

PATIENT
  Age: 79 Year
  Sex: Female
  Weight: 58.8 kg

DRUGS (8)
  1. TRASTUZUMAB EMTANSINE [Suspect]
     Indication: BREAST CANCER METASTATIC
     Dosage: LAST DOSE PRIOR TO SAE 05/DEC/2013
     Route: 042
     Dates: start: 20130329
  2. DUROGESIC [Concomitant]
     Route: 065
     Dates: start: 20131003
  3. AMLODIPINE [Concomitant]
     Route: 065
     Dates: start: 200606
  4. EMCONCOR [Concomitant]
     Route: 065
     Dates: start: 20130801
  5. NEXIAM [Concomitant]
     Route: 065
     Dates: start: 20130530
  6. MS DIRECT [Concomitant]
     Route: 065
     Dates: start: 20130530
  7. D-CURE [Concomitant]
     Route: 065
     Dates: start: 20130711
  8. MOTILIUM [Concomitant]
     Route: 065
     Dates: start: 20130321

REACTIONS (1)
  - Ankle fracture [Recovered/Resolved]
